FAERS Safety Report 16345034 (Version 4)
Quarter: 2019Q4

REPORT INFORMATION
  Report Type: Spontaneous
  Country: JP (occurrence: JP)
  Receive Date: 20190523
  Receipt Date: 20191114
  Transmission Date: 20200122
  Serious: Yes (Other)
  Sender: FDA-Public Use
  Company Number: JP-009507513-1905JPN001863J

PATIENT
  Age: 76 Year
  Sex: Male

DRUGS (1)
  1. KEYTRUDA [Suspect]
     Active Substance: PEMBROLIZUMAB
     Indication: NON-SMALL CELL LUNG CANCER
     Dosage: 200 MILLIGRAM, Q3W
     Route: 041
     Dates: start: 20181207, end: 20190510

REACTIONS (4)
  - Fibrin D dimer increased [Unknown]
  - Blood fibrinogen increased [Unknown]
  - Oedema peripheral [Not Recovered/Not Resolved]
  - Panniculitis [Unknown]

NARRATIVE: CASE EVENT DATE: 201812
